FAERS Safety Report 26157502 (Version 1)
Quarter: 2025Q4

REPORT INFORMATION
  Report Type: Spontaneous
  Country: US (occurrence: US)
  Receive Date: 20251215
  Receipt Date: 20251215
  Transmission Date: 20260118
  Serious: Yes (Hospitalization, Other)
  Sender: ETHYPHARM
  Company Number: US-ETHYPHARM-2025003989

PATIENT
  Age: 70 Year
  Sex: Male

DRUGS (3)
  1. BUPRENORPHINE [Suspect]
     Active Substance: BUPRENORPHINE
     Indication: Drug withdrawal syndrome
     Dosage: HIGH-DOSE BUPRENORPHINE ON HOSPITAL DAY 5.
  2. BUPRENORPHINE [Suspect]
     Active Substance: BUPRENORPHINE
     Indication: Drug withdrawal syndrome
  3. AMPHETAMINE\DEXTROAMPHETAMINE [Suspect]
     Active Substance: AMPHETAMINE\DEXTROAMPHETAMINE
     Indication: Product used for unknown indication
     Dosage: NEWLY PRESCRIBED AMPHETAMINE/DEXTROAMPHETAMINE AFTER FIRST TIME DISCHARGE.

REACTIONS (6)
  - Delirium [Recovering/Resolving]
  - Hypernatraemia [Recovered/Resolved]
  - Cerebral ventricle dilatation [Unknown]
  - Cerebral atrophy [Unknown]
  - Aggression [Recovering/Resolving]
  - Fall [Unknown]
